FAERS Safety Report 6230058-9 (Version None)
Quarter: 2009Q2

REPORT INFORMATION
  Report Type: 
  Country: None (occurrence: None)
  Receive Date: 20090615
  Receipt Date: 20090605
  Transmission Date: 20091009
  Serious: Yes (Death, Hospitalization)
  Sender: FDA-Public Use
  Company Number: IE-PFIZER INC-2009216866

PATIENT
  Age: 73 Year

DRUGS (2)
  1. LIPITOR [Suspect]
  2. FUSIDIC ACID [Interacting]
     Indication: OSTEOMYELITIS

REACTIONS (3)
  - CARDIAC ARREST [None]
  - DRUG INTERACTION [None]
  - RHABDOMYOLYSIS [None]
